FAERS Safety Report 17089431 (Version 1)
Quarter: 2019Q4

REPORT INFORMATION
  Report Type: Report from Study
  Country: FR (occurrence: FR)
  Receive Date: 20191128
  Receipt Date: 20191128
  Transmission Date: 20200122
  Serious: Yes (Other)
  Sender: FDA-Public Use
  Company Number: FR-GLAXOSMITHKLINE-FR2019TSO213869

PATIENT
  Age: 56 Year
  Sex: Female

DRUGS (1)
  1. NIRAPARIB [Suspect]
     Active Substance: NIRAPARIB
     Indication: OVARIAN CANCER
     Dosage: UNK (SECOND LINE MAINTENANCE (MAINTENANCE THERAPY FOLLOWING SECOND LINE TREATMENT))

REACTIONS (2)
  - Intentional product misuse [Unknown]
  - Recurrent cancer [Unknown]
